FAERS Safety Report 6488582-X (Version None)
Quarter: 2009Q4

REPORT INFORMATION
  Report Type: 
  Country: None (occurrence: None)
  Receive Date: 20091210
  Receipt Date: 20091203
  Transmission Date: 20100525
  Serious: Yes (Hospitalization)
  Sender: FDA-Public Use
  Company Number: BR-SANOFI-AVENTIS-200716432GDDC

PATIENT
  Age: 79 Year
  Sex: Female
  Weight: 78 kg

DRUGS (17)
  1. INSULIN GLARGINE [Suspect]
     Route: 058
  2. OPTIPEN [Suspect]
     Route: 058
  3. TICLID [Concomitant]
     Route: 048
  4. LOSARTAN [Concomitant]
     Route: 048
  5. MONTELUKAST SODIUM [Concomitant]
     Indication: LUNG DISORDER
     Route: 048
  6. PARACETAMOL [Concomitant]
     Route: 048
  7. BROMAZEPAM [Concomitant]
     Indication: SEDATIVE THERAPY
     Route: 048
  8. GLIMEPIRIDE [Concomitant]
     Route: 048
     Dates: start: 20010101
  9. OMEPRAZOLE [Concomitant]
     Indication: GASTRITIS
     Dates: start: 20020101
  10. ATENOLOL [Concomitant]
     Dates: start: 20050101
  11. ALL OTHER THERAPEUTIC PRODUCTS [Concomitant]
  12. CHONDROITIN W/GLUCOSAMINE [Concomitant]
     Dates: start: 20070701
  13. APROVEL [Concomitant]
     Indication: HYPERTENSION
     Route: 048
     Dates: start: 20090901
  14. SIMVASTATIN [Concomitant]
     Dosage: 1 TABLET
     Route: 048
  15. AMARYL [Concomitant]
     Indication: TYPE 2 DIABETES MELLITUS
     Route: 048
  16. PLAVIX [Concomitant]
     Route: 048
  17. SELOKEN [Concomitant]
     Route: 048
     Dates: start: 20091101

REACTIONS (20)
  - ARTHRALGIA [None]
  - BACK PAIN [None]
  - CHEST PAIN [None]
  - DEPRESSION [None]
  - DIARRHOEA [None]
  - DYSPHONIA [None]
  - FEELING ABNORMAL [None]
  - GAIT DISTURBANCE [None]
  - HYPERGLYCAEMIA [None]
  - HYPERHIDROSIS [None]
  - HYPOGLYCAEMIA [None]
  - INJECTION SITE HAEMORRHAGE [None]
  - MALAISE [None]
  - PAIN [None]
  - PNEUMONIA [None]
  - PRURITUS [None]
  - SWELLING [None]
  - TREMOR [None]
  - URINARY TRACT INFECTION [None]
  - VISION BLURRED [None]
